FAERS Safety Report 8565354-3 (Version None)
Quarter: 2012Q3

REPORT INFORMATION
  Report Type: 
  Country: None (occurrence: None)
  Receive Date: 20120723
  Receipt Date: 20120705
  Transmission Date: 20120928
  Serious: Yes (Hospitalization)
  Sender: FDA-Public Use
  Company Number: DSA_58557_2012

PATIENT
  Sex: Female

DRUGS (5)
  1. DEXAMETHASONE [Concomitant]
  2. EPIRUBICIN [Suspect]
     Indication: BREAST CANCER
     Dosage: EVERY CYCLE
     Dates: start: 20101208, end: 20110105
  3. CYCLOPHOSPHAMIDE [Suspect]
     Indication: BREAST CANCER
     Dosage: EVERY CYCLE
     Dates: start: 20101208, end: 20110105
  4. FLUOROURACIL [Suspect]
     Indication: BREAST CANCER
     Dosage: EVERY CYCLE
     Dates: start: 20101208, end: 20110105
  5. ONSIA [Concomitant]

REACTIONS (4)
  - HEADACHE [None]
  - DIARRHOEA [None]
  - FEBRILE NEUTROPENIA [None]
  - CHILLS [None]
